FAERS Safety Report 8778854 (Version 1)
Quarter: 2012Q4

REPORT INFORMATION
  Report Type: 
  Country: UZ (occurrence: UZ)
  Receive Date: 20120912
  Receipt Date: 20120912
  Transmission Date: 20130627
  Serious: Yes (Death)
  Sender: FDA-Public Use
  Company Number: PHHY2008UZ044177

PATIENT
  Sex: Male

DRUGS (1)
  1. GLIVEC [Suspect]
     Dates: start: 20060726

REACTIONS (3)
  - Myocardial ischaemia [Fatal]
  - Infarction [Fatal]
  - Cardiac failure [Fatal]
